FAERS Safety Report 16199431 (Version 2)
Quarter: 2019Q2

REPORT INFORMATION
  Report Type: Report from Study
  Country: US (occurrence: US)
  Receive Date: 20190415
  Receipt Date: 20190529
  Transmission Date: 20190711
  Serious: Yes (Hospitalization)
  Sender: FDA-Public Use
  Company Number: US-ACTELION-A-NJ2019-184656

PATIENT
  Age: 69 Year
  Sex: Female

DRUGS (25)
  1. INSULIN LISPRO [Concomitant]
     Active Substance: INSULIN LISPRO
  2. WARFARIN [Concomitant]
     Active Substance: WARFARIN
  3. POLYSACCHARIDE IRON [Concomitant]
  4. FERREX [Concomitant]
     Active Substance: FERRIC POLYSACCHARIDE COMPLEX
  5. ENOXAPARIN [Concomitant]
     Active Substance: ENOXAPARIN
  6. ALLOPURINOL. [Concomitant]
     Active Substance: ALLOPURINOL
  7. MAGNESIUM OXIDE. [Concomitant]
     Active Substance: MAGNESIUM OXIDE
  8. TORSEMIDE. [Concomitant]
     Active Substance: TORSEMIDE
  9. ADVAIR HFA [Concomitant]
     Active Substance: FLUTICASONE PROPIONATE\SALMETEROL XINAFOATE
  10. ALBUTEROL HFA [Concomitant]
     Active Substance: ALBUTEROL SULFATE
  11. CIPRO [Concomitant]
     Active Substance: CIPROFLOXACIN HYDROCHLORIDE
  12. FUROSEMIDE. [Concomitant]
     Active Substance: FUROSEMIDE
  13. LIDOCAINE. [Concomitant]
     Active Substance: LIDOCAINE
  14. INSULIN GLARGINE [Concomitant]
     Active Substance: INSULIN GLARGINE
  15. ONDANSETRON [Concomitant]
     Active Substance: ONDANSETRON
  16. VITAMIN D3 [Concomitant]
     Active Substance: CHOLECALCIFEROL
  17. RENVELA [Concomitant]
     Active Substance: SEVELAMER CARBONATE
  18. FLONASE [Concomitant]
     Active Substance: FLUTICASONE PROPIONATE
  19. COLCHICINE. [Concomitant]
     Active Substance: COLCHICINE
  20. MAALOX ANTACID [Concomitant]
     Active Substance: ALUMINUM HYDROXIDE\DIMETHICONE\MAGNESIUM HYDROXIDE
  21. OPSUMIT [Suspect]
     Active Substance: MACITENTAN
     Indication: PULMONARY ARTERIAL HYPERTENSION
     Dosage: UNK
     Route: 048
     Dates: start: 201811
  22. SILDENAFIL. [Concomitant]
     Active Substance: SILDENAFIL
  23. LEVOTHYROXINE. [Concomitant]
     Active Substance: LEVOTHYROXINE
  24. VITAMINS NOS [Concomitant]
     Active Substance: VITAMINS
  25. MIRALAX [Concomitant]
     Active Substance: POLYETHYLENE GLYCOL 3350

REACTIONS (11)
  - Somnolence [Not Recovered/Not Resolved]
  - Nasal congestion [Not Recovered/Not Resolved]
  - Hypotension [Unknown]
  - Lung disorder [Unknown]
  - Condition aggravated [Unknown]
  - Acute respiratory failure [Unknown]
  - Respiratory tract infection [Unknown]
  - Dyspnoea [Recovering/Resolving]
  - Dialysis [Unknown]
  - Haemodialysis [Unknown]
  - Malaise [Unknown]

NARRATIVE: CASE EVENT DATE: 2018
